FAERS Safety Report 5586151-7 (Version None)
Quarter: 2008Q1

REPORT INFORMATION
  Report Type: 
  Country: None (occurrence: None)
  Receive Date: 20080104
  Receipt Date: 20071227
  Transmission Date: 20080703
  Serious: Yes (Death, Other)
  Sender: FDA-Public Use
  Company Number: 2007SP024862

PATIENT
  Age: 68 Year
  Sex: Male

DRUGS (10)
  1. EPTIFIBATIDE (S-P) (EPTIFIBATIDE) [Suspect]
     Indication: ACUTE MYOCARDIAL INFARCTION
     Dosage: 8.5 M; ONCE IV; 15 ML; QH; IV
     Route: 042
     Dates: end: 20071201
  2. EPTIFIBATIDE (S-P) (EPTIFIBATIDE) [Suspect]
     Indication: MYOCARDIAL INFARCTION
     Dosage: 8.5 M; ONCE IV; 15 ML; QH; IV
     Route: 042
     Dates: end: 20071201
  3. EPTIFIBATIDE (S-P) (EPTIFIBATIDE) [Suspect]
     Indication: ACUTE MYOCARDIAL INFARCTION
     Dosage: 8.5 M; ONCE IV; 15 ML; QH; IV
     Route: 042
     Dates: start: 20071130
  4. EPTIFIBATIDE (S-P) (EPTIFIBATIDE) [Suspect]
     Indication: MYOCARDIAL INFARCTION
     Dosage: 8.5 M; ONCE IV; 15 ML; QH; IV
     Route: 042
     Dates: start: 20071130
  5. CLOPIDOGREL [Suspect]
     Indication: ACUTE MYOCARDIAL INFARCTION
     Dosage: 75 MG; QD; PO
     Route: 048
     Dates: start: 20071130, end: 20071201
  6. CLOPIDOGREL [Suspect]
     Indication: MYOCARDIAL INFARCTION
     Dosage: 75 MG; QD; PO
     Route: 048
     Dates: start: 20071130, end: 20071201
  7. HEPARIN [Suspect]
     Indication: ACUTE MYOCARDIAL INFARCTION
     Dosage: IV
     Route: 042
     Dates: start: 20071130, end: 20071201
  8. HEPARIN [Suspect]
     Indication: MYOCARDIAL INFARCTION
     Dosage: IV
     Route: 042
     Dates: start: 20071130, end: 20071201
  9. ASPIRIN [Suspect]
     Indication: ACUTE MYOCARDIAL INFARCTION
     Dosage: 100 MG; QD; PO
     Route: 048
     Dates: start: 20071130, end: 20071201
  10. ASPIRIN [Suspect]
     Indication: MYOCARDIAL INFARCTION
     Dosage: 100 MG; QD; PO
     Route: 048
     Dates: start: 20071130, end: 20071201

REACTIONS (1)
  - CEREBELLAR HAEMORRHAGE [None]
